FAERS Safety Report 4824135-4 (Version None)
Quarter: 2005Q4

REPORT INFORMATION
  Report Type: 
  Country: None (occurrence: None)
  Receive Date: 20051109
  Receipt Date: 20051025
  Transmission Date: 20060501
  Serious: Yes (Other)
  Sender: FDA-Public Use
  Company Number: US-AMGEN-US155526

PATIENT
  Sex: Female
  Weight: 59 kg

DRUGS (5)
  1. ENBREL [Suspect]
     Indication: PSORIASIS
     Dates: start: 20020101
  2. ENBREL [Suspect]
     Indication: PSORIATIC ARTHROPATHY
  3. SYNTHROID [Concomitant]
  4. WELLBUTRIN [Concomitant]
  5. VITAMIN B-12 [Concomitant]

REACTIONS (2)
  - ELECTROCARDIOGRAM CHANGE [None]
  - PERICARDIAL EFFUSION [None]
